FAERS Safety Report 8290266-2 (Version None)
Quarter: 2012Q2

REPORT INFORMATION
  Report Type: 
  Country: None (occurrence: None)
  Receive Date: 20120417
  Receipt Date: 20120402
  Transmission Date: 20120825
  Serious: Yes (Death, Other)
  Sender: FDA-Public Use
  Company Number: DE-WATSON-2012-06024

PATIENT
  Age: 3 Year

DRUGS (4)
  1. CARBOPLATIN [Suspect]
     Indication: MEDULLOBLASTOMA
     Dosage: UNK
     Route: 065
  2. CYCLOPHOSPHAMIDE [Suspect]
     Indication: MEDULLOBLASTOMA
     Dosage: UNK
     Route: 065
  3. ETOPOSIDE [Suspect]
     Indication: MEDULLOBLASTOMA
     Dosage: UNK
     Route: 065
  4. THIOTEPA [Suspect]
     Indication: MEDULLOBLASTOMA
     Dosage: UNK
     Route: 065

REACTIONS (4)
  - ACUTE RESPIRATORY DISTRESS SYNDROME [None]
  - RESPIRATORY FAILURE [None]
  - PNEUMOMEDIASTINUM [None]
  - PNEUMOTHORAX [None]
